FAERS Safety Report 12646930 (Version 1)
Quarter: 2016Q3

REPORT INFORMATION
  Report Type: Spontaneous
  Country: US (occurrence: None)
  Receive Date: 20160811
  Receipt Date: 20160811
  Transmission Date: 20161109
  Serious: Yes (Other)
  Sender: FDA-Public Use
  Company Number: None

PATIENT
  Age: 63 Year
  Sex: Female
  Weight: 56.25 kg

DRUGS (3)
  1. SERTRALINE [Suspect]
     Active Substance: SERTRALINE HYDROCHLORIDE
     Indication: DEPRESSION
     Route: 048
     Dates: start: 20150715
  2. ATORVASTATIN [Concomitant]
     Active Substance: ATORVASTATIN
  3. IBUPROFIN [Concomitant]

REACTIONS (6)
  - Emotional disorder [None]
  - Psychiatric symptom [None]
  - Anger [None]
  - Crying [None]
  - Mood swings [None]
  - Feeling of despair [None]

NARRATIVE: CASE EVENT DATE: 20150715
